FAERS Safety Report 25228220 (Version 1)
Quarter: 2025Q2

REPORT INFORMATION
  Report Type: Spontaneous
  Country: US (occurrence: US)
  Receive Date: 20250423
  Receipt Date: 20250423
  Transmission Date: 20250717
  Serious: Yes (Other)
  Sender: ABBVIE
  Company Number: US-ABBVIE-6240512

PATIENT
  Age: 83 Year
  Sex: Female

DRUGS (1)
  1. REFRESH PLUS [Suspect]
     Active Substance: CARBOXYMETHYLCELLULOSE SODIUM
     Indication: Dry eye
     Route: 047

REACTIONS (5)
  - Gastrostomy [Unknown]
  - Pneumonia [Recovered/Resolved]
  - Feeding disorder [Unknown]
  - Device failure [Unknown]
  - Rehabilitation therapy [Unknown]
